FAERS Safety Report 9480298 (Version 1)
Quarter: 2013Q3

REPORT INFORMATION
  Report Type: Spontaneous
  Country: US (occurrence: US)
  Receive Date: 20130828
  Receipt Date: 20130828
  Transmission Date: 20140515
  Serious: Yes (Other)
  Sender: FDA-Public Use
  Company Number: US-AMGEN-KDL096148

PATIENT
  Age: 9 Year
  Sex: Female

DRUGS (2)
  1. ENBREL [Suspect]
     Indication: JUVENILE IDIOPATHIC ARTHRITIS
     Dosage: .9 MG, 2 TIMES/WK
     Route: 058
     Dates: start: 20040701
  2. METHOTREXATE [Concomitant]

REACTIONS (3)
  - Suicidal ideation [Unknown]
  - Violence-related symptom [Unknown]
  - Depression [Unknown]
